FAERS Safety Report 18933414 (Version 1)
Quarter: 2021Q1

REPORT INFORMATION
  Report Type: Spontaneous
  Country: US (occurrence: US)
  Receive Date: 20210224
  Receipt Date: 20210224
  Transmission Date: 20210420
  Serious: Yes (Other)
  Sender: FDA-Public Use
  Company Number: US-ASTELLAS-2021US006547

PATIENT
  Age: 56 Year
  Sex: Female

DRUGS (5)
  1. LEXISCAN [Suspect]
     Active Substance: REGADENOSON
     Indication: CARDIAC STRESS TEST
     Dosage: 0.08 MG/ML,UNKNOWN FREQ.(SINGLE?DOSE PRE?FILLED SYRINGE:0.4 MG/5 ML (0.08 MG/ML))
     Route: 065
     Dates: start: 20210218, end: 20210218
  2. LEXISCAN [Suspect]
     Active Substance: REGADENOSON
     Indication: CARDIAC STRESS TEST
     Dosage: 0.08 MG/ML,UNKNOWN FREQ.(SINGLE?DOSE PRE?FILLED SYRINGE:0.4 MG/5 ML (0.08 MG/ML))
     Route: 065
     Dates: start: 20210218, end: 20210218
  3. LEXISCAN [Suspect]
     Active Substance: REGADENOSON
     Indication: CARDIAC STRESS TEST
     Dosage: 0.08 MG/ML,UNKNOWN FREQ.(SINGLE?DOSE PRE?FILLED SYRINGE:0.4 MG/5 ML (0.08 MG/ML))
     Route: 065
     Dates: start: 20210218, end: 20210218
  4. AMINOPHYLLINE. [Suspect]
     Active Substance: AMINOPHYLLINE
     Indication: HEART RATE INCREASED
     Dosage: UNK UNK, UNKNOWN FREQ.
     Route: 065
     Dates: start: 20210218
  5. LEXISCAN [Suspect]
     Active Substance: REGADENOSON
     Indication: CARDIAC STRESS TEST
     Dosage: 0.08 MG/ML,UNKNOWN FREQ.(SINGLE?DOSE PRE?FILLED SYRINGE:0.4 MG/5 ML (0.08 MG/ML))
     Route: 065
     Dates: start: 20210218, end: 20210218

REACTIONS (2)
  - Heart rate increased [Unknown]
  - Drooling [Unknown]

NARRATIVE: CASE EVENT DATE: 20210218
